FAERS Safety Report 4687288-7 (Version None)
Quarter: 2005Q2

REPORT INFORMATION
  Report Type: 
  Country: None (occurrence: None)
  Receive Date: 20050608
  Receipt Date: 20050523
  Transmission Date: 20051028
  Serious: Yes (Other)
  Sender: FDA-Public Use
  Company Number: 2005BI005052

PATIENT
  Age: 38 Year
  Sex: Female

DRUGS (12)
  1. NATALIZUMAB [Suspect]
     Indication: MULTIPLE SCLEROSIS
     Dosage: 300 MG;QW;IV
     Route: 042
     Dates: start: 20050225, end: 20050225
  2. AVONEX [Suspect]
     Indication: MULTIPLE SCLEROSIS
     Dosage: 30 UG;QW;IM
     Route: 030
     Dates: start: 20020101
  3. WELLBUTRIN [Concomitant]
  4. TRAZODONE [Concomitant]
  5. POTASSIUM CHLORIDE [Concomitant]
  6. LAMICTAL [Concomitant]
  7. CENTRUM [Concomitant]
  8. ASCORBIC ACID [Concomitant]
  9. LORAZEPAM [Concomitant]
  10. ALLEGRA [Concomitant]
  11. ALBUTEROL [Concomitant]
  12. SINGULAIR [Concomitant]

REACTIONS (4)
  - CHEST DISCOMFORT [None]
  - DYSPNOEA [None]
  - REFUSAL OF TREATMENT BY PATIENT [None]
  - RESPIRATORY ARREST [None]
